FAERS Safety Report 9190206 (Version 1)
Quarter: 2013Q1

REPORT INFORMATION
  Report Type: Spontaneous
  Country: US (occurrence: None)
  Receive Date: 20120703
  Receipt Date: 20120703
  Transmission Date: 20140127
  Serious: No
  Sender: FDA-Public Use
  Company Number: PHEH2012US007715

PATIENT
  Age: 33 Year
  Sex: Female

DRUGS (3)
  1. GILENYA (FTY) CAPSULE, 0.5MG [Suspect]
     Indication: MULTIPLE SCLEROSIS
     Dosage: QD ORAL
     Dates: start: 201202
  2. PROAIR (SALBUTAMOL SULFATE) (SALBUTAMOL SULFATE) [Concomitant]
  3. ETHINYESTRAD W/ FERROUS FUM / NORETHINYDIOL, FERROUS FUMMARATE, NORETHISTERONE ACETATE) [Concomitant]

REACTIONS (1)
  - Lip blister [None]
